FAERS Safety Report 10262479 (Version 2)
Quarter: 2014Q4

REPORT INFORMATION
  Report Type: Spontaneous
  Country: US (occurrence: US)
  Receive Date: 20140626
  Receipt Date: 20141001
  Transmission Date: 20150528
  Serious: Yes (Other)
  Sender: FDA-Public Use
  Company Number: US-PFIZER INC-2014174321

PATIENT
  Sex: Female

DRUGS (2)
  1. LYRICA [Suspect]
     Active Substance: PREGABALIN
     Dosage: UNK
  2. NITROSTAT [Suspect]
     Active Substance: NITROGLYCERIN
     Dosage: UNK

REACTIONS (1)
  - Myocardial infarction [Unknown]
